FAERS Safety Report 5800806-8 (Version None)
Quarter: 2008Q3

REPORT INFORMATION
  Report Type: 
  Country: None (occurrence: None)
  Receive Date: 20080703
  Receipt Date: 20080626
  Transmission Date: 20090109
  Serious: Yes (Hospitalization, Other)
  Sender: FDA-Public Use
  Company Number: US-MERCK-0705USA04153

PATIENT
  Age: 69 Year
  Sex: Female

DRUGS (3)
  1. FOSAMAX [Suspect]
     Indication: BONE DENSITY DECREASED
     Route: 048
     Dates: start: 19970601, end: 20010313
  2. FOSAMAX [Suspect]
     Indication: OSTEOPOROSIS
     Route: 048
     Dates: start: 19970601, end: 20010313
  3. [THERAPY UNSPECIFIED] [Concomitant]
     Indication: BLOOD CHOLESTEROL INCREASED
     Route: 065
     Dates: start: 20000101

REACTIONS (33)
  - ASTIGMATISM [None]
  - BACK DISORDER [None]
  - BLOOD CHOLESTEROL INCREASED [None]
  - CARDIAC MURMUR [None]
  - CATARACT [None]
  - CHEST PAIN [None]
  - CYST [None]
  - DENTAL NECROSIS [None]
  - DYSPEPSIA [None]
  - FACIAL PAIN [None]
  - GASTROOESOPHAGEAL REFLUX DISEASE [None]
  - GRANULOMA ANNULARE [None]
  - HAEMORRHOIDS [None]
  - HYPERMETROPIA [None]
  - JAW CYST [None]
  - JOINT INJURY [None]
  - MACULAR DEGENERATION [None]
  - MITRAL VALVE PROLAPSE [None]
  - ODONTOGENIC CYST [None]
  - ORAL DISORDER [None]
  - OSTEOARTHRITIS [None]
  - OSTEONECROSIS [None]
  - OSTEOPENIA [None]
  - PAIN IN JAW [None]
  - PALPITATIONS [None]
  - PAPILLOMA [None]
  - PRESBYOPIA [None]
  - RECTAL HAEMORRHAGE [None]
  - REFRACTIVE AMBLYOPIA [None]
  - TOOTH DISORDER [None]
  - TOOTH FRACTURE [None]
  - TOOTH LOSS [None]
  - VENOUS HAEMORRHAGE [None]
